FAERS Safety Report 14321306 (Version 1)
Quarter: 2017Q4

REPORT INFORMATION
  Report Type: Spontaneous
  Country: US (occurrence: US)
  Receive Date: 20171223
  Receipt Date: 20171223
  Transmission Date: 20180321
  Serious: Yes (Other)
  Sender: FDA-Public Use
  Company Number: US-BRISTOL-MYERS SQUIBB COMPANY-BMS-2017-112766

PATIENT
  Age: 42 Year
  Sex: Male

DRUGS (2)
  1. KENALOG-40 [Suspect]
     Active Substance: TRIAMCINOLONE ACETONIDE
     Indication: DYSHIDROTIC ECZEMA
     Dosage: 30 MG, ONE TIME DOSE
     Route: 030
     Dates: start: 20171120
  2. KENALOG-40 [Suspect]
     Active Substance: TRIAMCINOLONE ACETONIDE
     Indication: ECZEMA NUMMULAR
     Route: 065

REACTIONS (2)
  - Injection site abscess [Unknown]
  - Staphylococcal infection [Unknown]

NARRATIVE: CASE EVENT DATE: 20171204
